FAERS Safety Report 10049363 (Version 1)
Quarter: 2014Q2

REPORT INFORMATION
  Report Type: Spontaneous
  Country: RU (occurrence: RU)
  Receive Date: 20140401
  Receipt Date: 20140401
  Transmission Date: 20141212
  Serious: Yes (Hospitalization)
  Sender: FDA-Public Use
  Company Number: RU-009507513-1403RUS013949

PATIENT
  Age: 36 Year
  Sex: Female

DRUGS (1)
  1. PUREGON [Suspect]
     Route: 058

REACTIONS (1)
  - Angioedema [Recovered/Resolved]
